FAERS Safety Report 6550401-0 (Version None)
Quarter: 2010Q1

REPORT INFORMATION
  Report Type: 
  Country: None (occurrence: None)
  Receive Date: 20100125
  Receipt Date: 20100114
  Transmission Date: 20100710
  Serious: Yes (Disabling, Other)
  Sender: FDA-Public Use
  Company Number: NL-AMGEN-US387212

PATIENT
  Sex: Male

DRUGS (1)
  1. ENBREL [Suspect]
     Indication: DRUG USE FOR UNKNOWN INDICATION
     Dosage: STARTED ON AN UNKNOWN DATE WITH AN UNKNOWN DOSE AND IS STILL BEING USED WITH ONE WEEK OF STOPPING.

REACTIONS (4)
  - INCORRECT STORAGE OF DRUG [None]
  - POOR QUALITY DRUG ADMINISTERED [None]
  - PYREXIA [None]
  - WALKING DISABILITY [None]
